FAERS Safety Report 19278123 (Version 1)
Quarter: 2021Q2

REPORT INFORMATION
  Report Type: Spontaneous
  Country: FR (occurrence: FR)
  Receive Date: 20210520
  Receipt Date: 20210520
  Transmission Date: 20210717
  Serious: Yes (Other)
  Sender: FDA-Public Use
  Company Number: NVSC2021FR108855

PATIENT
  Age: 55 Year
  Sex: Female

DRUGS (6)
  1. ISONIAZID. [Suspect]
     Active Substance: ISONIAZID
     Indication: TUBERCULOSIS
     Dosage: 5 MG/KG, QD
     Route: 065
     Dates: start: 20181030, end: 201911
  2. RIFAMPICIN [Suspect]
     Active Substance: RIFAMPIN
     Indication: TUBERCULOSIS
     Dosage: 10 MG/KG, QD
     Route: 065
     Dates: start: 20181030, end: 201911
  3. DEXAMETHASONE. [Concomitant]
     Active Substance: DEXAMETHASONE
     Indication: IRIDOCYCLITIS
     Dosage: UNK
     Route: 065
  4. TROPICAMIDE. [Concomitant]
     Active Substance: TROPICAMIDE
     Indication: IRIDOCYCLITIS
     Dosage: UNK
     Route: 065
  5. PYRAZINAMIDE. [Suspect]
     Active Substance: PYRAZINAMIDE
     Indication: TUBERCULOSIS
     Dosage: 30 MG/KG, QD
     Route: 065
     Dates: start: 20181030, end: 201812
  6. ETHAMBUTOL [Suspect]
     Active Substance: ETHAMBUTOL HYDROCHLORIDE
     Indication: TUBERCULOSIS
     Dosage: 15 MG/KG, QD
     Route: 065
     Dates: start: 20181030, end: 201812

REACTIONS (1)
  - Immune reconstitution inflammatory syndrome associated tuberculosis [Recovering/Resolving]
